FAERS Safety Report 11979722 (Version 3)
Quarter: 2016Q1

REPORT INFORMATION
  Report Type: Report from Study
  Country: US (occurrence: US)
  Receive Date: 20160129
  Receipt Date: 20160203
  Transmission Date: 20160526
  Serious: Yes (Death)
  Sender: FDA-Public Use
  Company Number: US-009507513-1601USA010001

PATIENT
  Age: 67 Year
  Sex: Female

DRUGS (1)
  1. CEFTOLOZANE SULFATE (+) TAZOBACTAM SODIUM [Suspect]
     Active Substance: CEFTOLOZANE SULFATE\TAZOBACTAM SODIUM

REACTIONS (3)
  - Death [Fatal]
  - Respiratory failure [None]
  - Shock [None]

NARRATIVE: CASE EVENT DATE: 20150419
